FAERS Safety Report 6840108-4 (Version None)
Quarter: 2010Q3

REPORT INFORMATION
  Report Type: 
  Country: None (occurrence: None)
  Receive Date: 20100713
  Receipt Date: 20100713
  Transmission Date: 20110219
  Serious: No
  Sender: FDA-Public Use
  Company Number: None

PATIENT
  Sex: Female
  Weight: 108.8633 kg

DRUGS (1)
  1. LAMOTRIGINE [Suspect]
     Dosage: 150 MG BID PO
     Route: 048
     Dates: start: 20100201, end: 20100601

REACTIONS (7)
  - AFFECT LABILITY [None]
  - ANXIETY [None]
  - CRYING [None]
  - DEPRESSION [None]
  - HYPOMANIA [None]
  - IMPAIRED WORK ABILITY [None]
  - PRODUCT SUBSTITUTION ISSUE [None]
